FAERS Safety Report 25567472 (Version 1)
Quarter: 2025Q3

REPORT INFORMATION
  Report Type: Spontaneous
  Country: US (occurrence: US)
  Receive Date: 20250716
  Receipt Date: 20250716
  Transmission Date: 20251020
  Serious: Yes (Other)
  Sender: NOVARTIS
  Company Number: US-002147023-NVSC2025US111615

PATIENT
  Age: 9 Year
  Sex: Male

DRUGS (1)
  1. TRAMETINIB [Suspect]
     Active Substance: TRAMETINIB
     Indication: Neurofibromatosis
     Dosage: 1 MG, QD (RECEIVED FOR 35 MONTHS EXCLUDING A 6-MONTH MEDICATION HOLIDAY FOR MYOSITIS OSSIFICANS AND
     Route: 065

REACTIONS (4)
  - Serous retinopathy [Recovered/Resolved]
  - Neurofibromatosis [Unknown]
  - Disease progression [Unknown]
  - Off label use [Unknown]
